FAERS Safety Report 10697980 (Version 2)
Quarter: 2015Q1

REPORT INFORMATION
  Report Type: Spontaneous
  Country: US (occurrence: US)
  Receive Date: 20150108
  Receipt Date: 20150114
  Transmission Date: 20150721
  Serious: No
  Sender: FDA-Public Use
  Company Number: US-PFIZER INC-2015006388

PATIENT
  Age: 70 Year
  Sex: Male
  Weight: 88.89 kg

DRUGS (4)
  1. NEURONTIN [Suspect]
     Active Substance: GABAPENTIN
     Dosage: FIVE OF 300MG CAPSULES DAILY
     Route: 048
  2. TYLENOL [Concomitant]
     Active Substance: ACETAMINOPHEN
     Dosage: 3 G, DAILY
  3. NEURONTIN [Suspect]
     Active Substance: GABAPENTIN
     Indication: NEURALGIA
     Dosage: 1200 MG, DAILY (200MG IN MORNING, 200MG AT 2PM, 800MG AT 8PM)
     Dates: start: 20141101
  4. SINEMET [Concomitant]
     Active Substance: CARBIDOPA\LEVODOPA
     Dosage: CARBIDOPA 25MG, LEVODOPA 100MG, FIVE A DAY (TWO IN MORNING AND TWO AT LUNCH AND ONE AT DINNER)

REACTIONS (6)
  - Clumsiness [Unknown]
  - Vision blurred [Unknown]
  - Diplopia [Unknown]
  - Product use issue [Unknown]
  - Balance disorder [Unknown]
  - Asthenia [Unknown]

NARRATIVE: CASE EVENT DATE: 2014
